FAERS Safety Report 17652623 (Version 6)
Quarter: 2021Q3

REPORT INFORMATION
  Report Type: Spontaneous
  Country: US (occurrence: US)
  Receive Date: 20200409
  Receipt Date: 20210730
  Transmission Date: 20211014
  Serious: Yes (Other)
  Sender: FDA-Public Use
  Company Number: US-VERTEX PHARMACEUTICALS-2020-007887

PATIENT
  Age: 46 Year
  Sex: Female

DRUGS (18)
  1. HUMALOG [Concomitant]
     Active Substance: INSULIN LISPRO
     Dosage: 2?8 UNITS WITH MEALS
     Dates: end: 20200210
  2. ALLEGRA?D [Concomitant]
     Active Substance: FEXOFENADINE HYDROCHLORIDE\PSEUDOEPHEDRINE HYDROCHLORIDE
     Dosage: 1 TAB, QOD
     Route: 048
  3. ZENPEP [Concomitant]
     Active Substance: PANCRELIPASE AMYLASE\PANCRELIPASE LIPASE\PANCRELIPASE PROTEASE
     Dosage: 6 CAP WITH MEALS TID
     Route: 048
  4. DOXEPIN [Concomitant]
     Active Substance: DOXEPIN
     Dosage: 1 CAP, TID
     Route: 048
  5. ARNUITY ELLIPTA [Concomitant]
     Active Substance: FLUTICASONE FUROATE
     Dosage: 1 PUFF
     Dates: end: 20200210
  6. MELATONIN [Concomitant]
     Active Substance: MELATONIN
     Dosage: 1 CAP, QOD
     Route: 048
  7. LANTUS [Concomitant]
     Active Substance: INSULIN GLARGINE
     Route: 058
  8. VENTOLIN HFA [Concomitant]
     Active Substance: ALBUTEROL SULFATE
     Dosage: 2?6 PUFFS EVERY 4 HOURS
  9. AZITHROMYCIN ANHYDROUS. [Concomitant]
     Active Substance: AZITHROMYCIN ANHYDROUS
     Dosage: 1 TAB MON, WED, FRI
     Route: 048
  10. GABAPENTIN. [Concomitant]
     Active Substance: GABAPENTIN
     Dosage: 1 CAP, QID
     Route: 048
  11. CYMBALTA [Concomitant]
     Active Substance: DULOXETINE HYDROCHLORIDE
     Dosage: 2 CAP, QOD
     Route: 048
  12. NOVOLOG [Concomitant]
     Active Substance: INSULIN ASPART
  13. CHOLECALCIFEROL [Concomitant]
     Active Substance: CHOLECALCIFEROL
     Dosage: 1 CAP FOR 30 DAYS
     Route: 048
  14. SODIUM CHLORIDE. [Concomitant]
     Active Substance: SODIUM CHLORIDE
     Dosage: UNK, BID
  15. PULMOZYME [Concomitant]
     Active Substance: DORNASE ALFA
     Dosage: UNK, QOD
  16. PROPRANOLOL [Concomitant]
     Active Substance: PROPRANOLOL HYDROCHLORIDE
     Dosage: 1 CAP, QOD
     Route: 048
  17. PANTOPRAZOLE [Concomitant]
     Active Substance: PANTOPRAZOLE
     Dosage: 1 TAB, QOD
     Route: 048
  18. TRIKAFTA [Suspect]
     Active Substance: ELEXACAFTOR\IVACAFTOR\TEZACAFTOR
     Indication: CYSTIC FIBROSIS
     Dosage: 2 TABS (100MG ELEXACAFTOR/50MG TEZACAFTOR/75MG IVACAFTOR) QAM;1 TAB (150MG IVACAFTOR) QPM
     Route: 048
     Dates: start: 20200311

REACTIONS (5)
  - Respiratory tract congestion [Not Recovered/Not Resolved]
  - Sinus pain [Not Recovered/Not Resolved]
  - Dry throat [Unknown]
  - Sinus operation [Unknown]
  - Nausea [Unknown]

NARRATIVE: CASE EVENT DATE: 2020
